FAERS Safety Report 4418509-3 (Version None)
Quarter: 2004Q3

REPORT INFORMATION
  Report Type: 
  Country: None (occurrence: None)
  Receive Date: 20040809
  Receipt Date: 20040517
  Transmission Date: 20050211
  Serious: No
  Sender: FDA-Public Use
  Company Number: US-GLAXOSMITHKLINE-A0511092A

PATIENT
  Age: 71 Year
  Sex: Female

DRUGS (5)
  1. PAXIL CR [Suspect]
     Indication: DEPRESSION
     Dosage: 12.5MG PER DAY
     Route: 048
  2. PRAVACHOL [Concomitant]
  3. FOSAMAX [Concomitant]
  4. MULTIVITAMIN [Concomitant]
  5. ESTROGEN [Concomitant]
     Route: 065

REACTIONS (5)
  - ASTHENIA [None]
  - DEPRESSION [None]
  - DIZZINESS [None]
  - HEAD DISCOMFORT [None]
  - TINNITUS [None]
